FAERS Safety Report 20784943 (Version 1)
Quarter: 2022Q2

REPORT INFORMATION
  Report Type: Spontaneous
  Country: US (occurrence: None)
  Receive Date: 20220503
  Receipt Date: 20220503
  Transmission Date: 20220720
  Serious: No
  Sender: FDA-Public Use
  Company Number: None

PATIENT
  Age: 56 Year
  Sex: Male

DRUGS (1)
  1. ABIRATERONE [Suspect]
     Active Substance: ABIRATERONE
     Indication: Prostate cancer metastatic
     Dosage: FREQUENCY : DAILY;?
     Route: 048
     Dates: start: 202108

REACTIONS (5)
  - Fatigue [None]
  - Muscle spasms [None]
  - Fluid intake reduced [None]
  - Influenza like illness [None]
  - Prostatic specific antigen increased [None]

NARRATIVE: CASE EVENT DATE: 20210803
